FAERS Safety Report 10149785 (Version 1)
Quarter: 2014Q2

REPORT INFORMATION
  Report Type: Spontaneous
  Country: US (occurrence: None)
  Receive Date: 20140501
  Receipt Date: 20140501
  Transmission Date: 20141212
  Serious: No
  Sender: FDA-Public Use
  Company Number: None

PATIENT
  Age: 26 Year
  Sex: Female

DRUGS (3)
  1. WARFARIN [Suspect]
     Indication: PROPHYLAXIS
     Route: 048
     Dates: start: 20130805
  2. METRONIDAZOLE [Concomitant]
  3. WARFARIN [Concomitant]

REACTIONS (3)
  - Gingival bleeding [None]
  - Headache [None]
  - International normalised ratio increased [None]
